FAERS Safety Report 9473579 (Version 1)
Quarter: 2013Q3

REPORT INFORMATION
  Report Type: Spontaneous
  Country: US (occurrence: US)
  Receive Date: 20130823
  Receipt Date: 20130823
  Transmission Date: 20140515
  Serious: No
  Sender: FDA-Public Use
  Company Number: US-BRISTOL-MYERS SQUIBB COMPANY-19063924

PATIENT
  Age: 65 Year
  Sex: Male

DRUGS (3)
  1. SPRYCEL (CML) TABS [Suspect]
     Indication: CHRONIC MYELOID LEUKAEMIA
     Route: 048
  2. CIPRO [Suspect]
     Indication: INFECTION
  3. AUGMENTIN [Suspect]
     Indication: INFECTION

REACTIONS (3)
  - Rash pruritic [Unknown]
  - Blood potassium decreased [Unknown]
  - Infection [Unknown]
